FAERS Safety Report 21297010 (Version 1)
Quarter: 2022Q3

REPORT INFORMATION
  Report Type: Spontaneous
  Country: FR (occurrence: FR)
  Receive Date: 20220906
  Receipt Date: 20220906
  Transmission Date: 20221026
  Serious: Yes (Life-Threatening)
  Sender: FDA-Public Use
  Company Number: None

PATIENT
  Age: 72 Year
  Sex: Male

DRUGS (7)
  1. IRBESARTAN [Suspect]
     Active Substance: IRBESARTAN
     Indication: Hypertension
     Dosage: THERAPY START DATE : ASKED BUT UNKNOWN,UNIT DOSE : 75  MG, FREQUENCY TIME : 1 DAYS
     Route: 065
     Dates: end: 20220802
  2. ATORVASTATIN [Concomitant]
     Active Substance: ATORVASTATIN
     Indication: Product used for unknown indication
     Dosage: THERAPY START DATE: ASKED BUT UNKNOWN, UNIT DOSE : 20 MG,FREQUENCY TIME : 1 DAYS
     Dates: end: 20220802
  3. XARELTO [Concomitant]
     Active Substance: RIVAROXABAN
     Indication: Product used for unknown indication
     Dosage: UNIT DOSE AND UNIT STRENGTH : 15 MG, THERAPY START DATE :  ASKED BUT UNKNOWN, FREQUENCY TIME : 1 DAY
     Dates: end: 20220802
  4. BISOPROLOL FUMARATE [Concomitant]
     Active Substance: BISOPROLOL FUMARATE
     Indication: Product used for unknown indication
     Dosage: THERAPY START DATE :  ASKED BUT UNKNOWN, UNIT DOSE : 2.5  MG, FREQUENCY TIME : 1 DAYS
     Dates: end: 20220802
  5. LERCANIDIPINE HYDROCHLORIDE [Concomitant]
     Active Substance: LERCANIDIPINE HYDROCHLORIDE
     Indication: Product used for unknown indication
     Dosage: THERAPY START DATE :  ASKED BUT UNKNOWN, UNIT DOSE : 10 MG, FREQUENCY TIME : 1 DAYS
     Dates: end: 20220802
  6. INSULIN GLARGINE [Concomitant]
     Active Substance: INSULIN GLARGINE
     Indication: Product used for unknown indication
     Dosage: ((BACTERIA/ESCHERICHIA COLI)), UNIT DOSE : 10 IU, THERAPY START DATE :  ASKED BUT UNKNOWN, FREQUENCY
     Dates: end: 20220802
  7. BIPHASIC ISOPHANE RECOMBINANT INSULIN LISPRO [Concomitant]
     Indication: Product used for unknown indication
     Dosage: BIPHASIC ISOPHANE RECOMBINANT, ((BACTERIA/ESCHERICHIA COLI)), THERAPY START DATE :  ASKED BUT UNKNOW
     Dates: end: 20220802

REACTIONS (3)
  - Hyperkalaemia [Recovered/Resolved]
  - Acute kidney injury [Recovered/Resolved]
  - Atrioventricular block second degree [Recovered/Resolved]

NARRATIVE: CASE EVENT DATE: 20220802
